FAERS Safety Report 23677895 (Version 1)
Quarter: 2024Q1

REPORT INFORMATION
  Report Type: Spontaneous
  Country: US (occurrence: US)
  Receive Date: 20240327
  Receipt Date: 20240327
  Transmission Date: 20240410
  Serious: Yes (Other)
  Sender: FDA-Public Use
  Company Number: US-009507513-2403USA007369

PATIENT
  Age: 72 Year
  Sex: Male

DRUGS (4)
  1. KEYTRUDA [Suspect]
     Active Substance: PEMBROLIZUMAB
     Dosage: 200 MILLIGRAM
     Dates: start: 20240318, end: 20240318
  2. BELATACEPT [Suspect]
     Active Substance: BELATACEPT
     Dosage: 400 MILLIGRAM
  3. PREDNISONE [Concomitant]
     Active Substance: PREDNISONE
  4. TACROLIMUS [Concomitant]
     Active Substance: TACROLIMUS

REACTIONS (2)
  - Wrong patient received product [Unknown]
  - No adverse event [Unknown]

NARRATIVE: CASE EVENT DATE: 20240318
